FAERS Safety Report 23023099 (Version 2)
Quarter: 2024Q1

REPORT INFORMATION
  Report Type: Spontaneous
  Country: US (occurrence: US)
  Receive Date: 20231003
  Receipt Date: 20240202
  Transmission Date: 20240410
  Serious: Yes (Other)
  Sender: FDA-Public Use
  Company Number: US-PPDUS-2023ST002733

PATIENT
  Age: 51 Year
  Sex: Female

DRUGS (1)
  1. ORSERDU [Suspect]
     Active Substance: ELACESTRANT
     Indication: Product used for unknown indication
     Route: 048
     Dates: start: 202307

REACTIONS (4)
  - Red blood cell count decreased [Unknown]
  - Haemoglobin decreased [Unknown]
  - Chest pain [Unknown]
  - Disease progression [Unknown]
